FAERS Safety Report 22703480 (Version 5)
Quarter: 2023Q4

REPORT INFORMATION
  Report Type: Report from Study
  Country: US (occurrence: US)
  Receive Date: 20230713
  Receipt Date: 20231115
  Transmission Date: 20240110
  Serious: Yes (Other)
  Sender: FDA-Public Use
  Company Number: US-ACADIA PHARMACEUTICALS INC.-ACA-2023-TRF-002505

PATIENT
  Age: 2 Year
  Sex: Male

DRUGS (6)
  1. DAYBUE [Suspect]
     Active Substance: TROFINETIDE
     Indication: Rett syndrome
     Dosage: 25 MILLILITER, BID VIA G-TUBE
     Dates: start: 20230531
  2. DAYBUE [Suspect]
     Active Substance: TROFINETIDE
     Indication: Disease susceptibility
     Dosage: 25 MILLILITER AT 06:00 AM AND 25 ML AT 08:00 AM VIA G-TUBE
     Dates: start: 20230805
  3. DAYBUE [Suspect]
     Active Substance: TROFINETIDE
     Dosage: 25 MILLILITER, BID VIA G-TUBE
  4. DAYBUE [Suspect]
     Active Substance: TROFINETIDE
     Dosage: WENT DOWN IN DOSE VIA G-TUBE
  5. DAYBUE [Suspect]
     Active Substance: TROFINETIDE
     Dosage: 25 MILLILITER, BID VIA G-TUBE
  6. KEPPRA [Concomitant]
     Active Substance: LEVETIRACETAM
     Dosage: UNK
     Dates: start: 2023

REACTIONS (8)
  - Seizure [Not Recovered/Not Resolved]
  - Constipation [Recovered/Resolved]
  - Gastric infection [Recovered/Resolved]
  - Muscle spasms [Not Recovered/Not Resolved]
  - Norovirus infection [Recovering/Resolving]
  - Product dose omission issue [Recovered/Resolved]
  - Inappropriate schedule of product administration [Recovered/Resolved]
  - Vomiting [Recovered/Resolved]

NARRATIVE: CASE EVENT DATE: 20230528
